FAERS Safety Report 24972426 (Version 1)
Quarter: 2025Q1

REPORT INFORMATION
  Report Type: Spontaneous
  Country: JP (occurrence: JP)
  Receive Date: 20250215
  Receipt Date: 20250215
  Transmission Date: 20250409
  Serious: Yes (Life-Threatening, Hospitalization, Other)
  Sender: QUAGEN PHARMACEUTICALS
  Company Number: JP-QUAGEN-2025QUALIT00222

PATIENT
  Age: 48 Year
  Sex: Male
  Weight: 98 kg

DRUGS (8)
  1. LIDOCAINE [Suspect]
     Active Substance: LIDOCAINE
     Indication: Local anaesthesia
     Route: 007
  2. REMIFENTANIL [Suspect]
     Active Substance: REMIFENTANIL
     Indication: Local anaesthesia
     Route: 065
  3. REMIFENTANIL [Suspect]
     Active Substance: REMIFENTANIL
     Route: 065
  4. REMIMAZOLAM [Suspect]
     Active Substance: REMIMAZOLAM
     Indication: Local anaesthesia
     Route: 065
  5. REMIMAZOLAM [Suspect]
     Active Substance: REMIMAZOLAM
     Route: 065
  6. ROCURONIUM [Suspect]
     Active Substance: ROCURONIUM BROMIDE
     Indication: Local anaesthesia
     Route: 065
  7. FENTANYL [Suspect]
     Active Substance: FENTANYL
     Indication: Local anaesthesia
     Route: 065
  8. EPINEPHRINE\LIDOCAINE HYDROCHLORIDE [Suspect]
     Active Substance: EPINEPHRINE\LIDOCAINE HYDROCHLORIDE
     Indication: Local anaesthesia
     Route: 065

REACTIONS (4)
  - Local anaesthetic systemic toxicity [Recovered/Resolved]
  - Electrocardiogram QRS complex prolonged [Recovered/Resolved]
  - Electrocardiogram QT prolonged [Recovered/Resolved]
  - Seizure [Recovered/Resolved]
